FAERS Safety Report 6961203-5 (Version None)
Quarter: 2010Q3

REPORT INFORMATION
  Report Type: 
  Country: None (occurrence: None)
  Receive Date: 20100901
  Receipt Date: 20100830
  Transmission Date: 20110219
  Serious: Yes (Other)
  Sender: FDA-Public Use
  Company Number: FR-BRISTOL-MYERS SQUIBB COMPANY-15251721

PATIENT
  Age: 73 Year
  Sex: Female
  Weight: 133 kg

DRUGS (7)
  1. HYDREA [Suspect]
     Indication: ACUTE MYELOID LEUKAEMIA
     Route: 048
     Dates: start: 20091124, end: 20091130
  2. FASTURTEC [Suspect]
     Indication: NEOPLASM PROPHYLAXIS
     Route: 048
     Dates: start: 20091126, end: 20091127
  3. ZAVEDOS [Suspect]
     Indication: ACUTE MYELOID LEUKAEMIA
     Route: 042
     Dates: start: 20061126, end: 20091130
  4. BELUSTINE [Suspect]
     Indication: ACUTE MYELOID LEUKAEMIA
     Dates: start: 20091126, end: 20091126
  5. ARACYTINE [Suspect]
     Indication: ACUTE MYELOID LEUKAEMIA
     Route: 042
     Dates: start: 20091126, end: 20091202
  6. ZOFRAN [Suspect]
     Indication: VOMITING
     Dosage: 1DF= 8MG/4ML
     Route: 042
     Dates: start: 20091126, end: 20091130
  7. LEVOTHYROXINE SODIUM [Concomitant]

REACTIONS (3)
  - BLOOD BILIRUBIN INCREASED [None]
  - CYTOLYTIC HEPATITIS [None]
  - HEPATIC STEATOSIS [None]
